FAERS Safety Report 12396504 (Version 1)
Quarter: 2016Q2

REPORT INFORMATION
  Report Type: Spontaneous
  Country: US (occurrence: None)
  Receive Date: 20160523
  Receipt Date: 20160523
  Transmission Date: 20160815
  Serious: Yes (Hospitalization)
  Sender: FDA-Public Use
  Company Number: None

PATIENT
  Age: 39 Year
  Sex: Female

DRUGS (1)
  1. AMPYRA [Suspect]
     Active Substance: DALFAMPRIDINE
     Indication: MULTIPLE SCLEROSIS
     Route: 048
     Dates: start: 20160402

REACTIONS (5)
  - Incorrect dose administered [None]
  - Urinary tract infection [None]
  - Urinary tract infection fungal [None]
  - Sepsis [None]
  - Mental status changes [None]

NARRATIVE: CASE EVENT DATE: 20160401
